FAERS Safety Report 17869526 (Version 3)
Quarter: 2020Q2

REPORT INFORMATION
  Report Type: Report from Study
  Country: BR (occurrence: BR)
  Receive Date: 20200608
  Receipt Date: 20200618
  Transmission Date: 20200714
  Serious: Yes (Disabling)
  Sender: FDA-Public Use
  Company Number: BR-ROCHE-2614361

PATIENT
  Age: 38 Year
  Sex: Female

DRUGS (4)
  1. XOLAIR [Suspect]
     Active Substance: OMALIZUMAB
     Dosage: UNK
     Route: 065
     Dates: start: 20190911
  2. XOLAIR [Suspect]
     Active Substance: OMALIZUMAB
     Dosage: UNK
     Route: 065
  3. XOLAIR [Suspect]
     Active Substance: OMALIZUMAB
     Indication: URTICARIA
     Dosage: UNK
     Route: 065
     Dates: start: 20190424
  4. XOLAIR [Suspect]
     Active Substance: OMALIZUMAB
     Dosage: UNK
     Route: 065
     Dates: start: 20190715

REACTIONS (17)
  - Dizziness [Recovered/Resolved]
  - Muscular weakness [Unknown]
  - Eating disorder [Unknown]
  - Pyrexia [Recovered/Resolved]
  - Headache [Unknown]
  - Tremor [Unknown]
  - Product use issue [Unknown]
  - Drug hypersensitivity [Unknown]
  - Headache [Recovered/Resolved]
  - Poor peripheral circulation [Recovered/Resolved]
  - Vomiting [Recovered/Resolved]
  - Immune system disorder [Recovering/Resolving]
  - Malaise [Unknown]
  - Myalgia [Recovered/Resolved]
  - Movement disorder [Recovering/Resolving]
  - Abdominal pain [Unknown]
  - Fatigue [Unknown]

NARRATIVE: CASE EVENT DATE: 20190718
